FAERS Safety Report 13689655 (Version 1)
Quarter: 2017Q2

REPORT INFORMATION
  Report Type: Spontaneous
  Country: US (occurrence: US)
  Receive Date: 20170626
  Receipt Date: 20170626
  Transmission Date: 20170830
  Serious: Yes (Other)
  Sender: FDA-Public Use
  Company Number: None

PATIENT
  Age: 86 Year
  Sex: Male
  Weight: 75.75 kg

DRUGS (5)
  1. SULFAMETHOXAZOLE [Suspect]
     Active Substance: SULFAMETHOXAZOLE
     Indication: PROSTATE INFECTION
     Dosage: STRENGTH: 800MG SULFAMETHOXAZOLE/160 MG TRIMETHOPRIM
     Route: 048
     Dates: start: 20170115, end: 20170205
  2. METOPROLOL. [Concomitant]
     Active Substance: METOPROLOL
  3. LOW DOSE ASPIRIN [Concomitant]
     Active Substance: ASPIRIN
  4. SENIOR MULTIVITAMIN [Concomitant]
  5. VITAMIN C [Concomitant]
     Active Substance: ASCORBIC ACID

REACTIONS (6)
  - Abdominal pain upper [None]
  - Hypersensitivity [None]
  - Rash [None]
  - Arthralgia [None]
  - Asthenia [None]
  - Dysgeusia [None]

NARRATIVE: CASE EVENT DATE: 20170205
